FAERS Safety Report 10501401 (Version 1)
Quarter: 2014Q4

REPORT INFORMATION
  Report Type: Spontaneous
  Country: US (occurrence: None)
  Receive Date: 20141006
  Receipt Date: 20141006
  Transmission Date: 20150528
  Serious: Yes (Disabling)
  Sender: FDA-Public Use
  Company Number: None

PATIENT
  Age: 59 Year
  Sex: Female
  Weight: 53.52 kg

DRUGS (2)
  1. KLONOPIN [Suspect]
     Active Substance: CLONAZEPAM
     Indication: POST-TRAUMATIC STRESS DISORDER
     Dosage: .25  2 X A DAY
     Dates: end: 20121028
  2. KLONOPIN [Suspect]
     Active Substance: CLONAZEPAM
     Indication: ADVERSE DRUG REACTION
     Dosage: .25  2 X A DAY
     Dates: end: 20121028

REACTIONS (7)
  - Anxiety [None]
  - Depression [None]
  - Neuralgia [None]
  - Withdrawal syndrome [None]
  - Insomnia [None]
  - Paradoxical drug reaction [None]
  - Quality of life decreased [None]

NARRATIVE: CASE EVENT DATE: 20120107
